FAERS Safety Report 8303480-4 (Version None)
Quarter: 2012Q2

REPORT INFORMATION
  Report Type: 
  Country: None (occurrence: None)
  Receive Date: 20120418
  Receipt Date: 20110317
  Transmission Date: 20120825
  Serious: No
  Sender: FDA-Public Use
  Company Number: AEUSA201100062

PATIENT
  Age: 55 Year
  Sex: Male
  Weight: 127 kg

DRUGS (8)
  1. EXTRA STRENGTH TYLENOL [Concomitant]
  2. ALBUTEROL SULFATE /00139501/ [Concomitant]
  3. ADVAIR DISKUS 100/50 [Concomitant]
  4. BENADRYL [Concomitant]
  5. SPIRIVA [Concomitant]
  6. PROLASTIN-C [Suspect]
     Indication: ALPHA-1 ANTI-TRYPSIN DEFICIENCY
     Dosage: 7620 MG;QW;IV
     Route: 042
     Dates: start: 20100401, end: 20110401
  7. UNIPHYL [Concomitant]
  8. PAXIL [Concomitant]

REACTIONS (6)
  - ARTHRALGIA [None]
  - MYALGIA [None]
  - CHILLS [None]
  - DIZZINESS [None]
  - PRODUCT SUBSTITUTION ISSUE [None]
  - PYREXIA [None]
